FAERS Safety Report 4937264-1 (Version None)
Quarter: 2006Q1

REPORT INFORMATION
  Report Type: 
  Country: None (occurrence: None)
  Receive Date: 20060309
  Receipt Date: 20060302
  Transmission Date: 20060701
  Serious: Yes (Hospitalization)
  Sender: FDA-Public Use
  Company Number: DE-JNJFOC-20060301145

PATIENT
  Age: 59 Year
  Sex: Male

DRUGS (7)
  1. INFLIXIMAB [Suspect]
     Route: 042
  2. LANTUS [Concomitant]
     Indication: DIABETES MELLITUS
  3. AMARYL [Concomitant]
     Indication: DIABETES MELLITUS
  4. DIALTREND [Concomitant]
  5. DELIX [Concomitant]
  6. NORVASC [Concomitant]
  7. ACETYLSALICYLIC ACID SRT [Concomitant]
     Indication: THROMBOSIS PROPHYLAXIS

REACTIONS (1)
  - DERMATITIS ATOPIC [None]
